FAERS Safety Report 21949642 (Version 3)
Quarter: 2023Q1

REPORT INFORMATION
  Report Type: Spontaneous
  Country: US (occurrence: None)
  Receive Date: 20230203
  Receipt Date: 20230302
  Transmission Date: 20230418
  Serious: Yes (Hospitalization, Other)
  Sender: FDA-Public Use
  Company Number: 2023A024087

PATIENT
  Age: 40 Year
  Sex: Male
  Weight: 164.2 kg

DRUGS (4)
  1. TEZSPIRE [Suspect]
     Active Substance: TEZEPELUMAB-EKKO
     Indication: Asthma
     Route: 058
     Dates: start: 20221227
  2. TEZSPIRE [Suspect]
     Active Substance: TEZEPELUMAB-EKKO
     Indication: Asthma
  3. PULMICORT TURBUHALER [Suspect]
     Active Substance: BUDESONIDE
     Dosage: 0.25 MG/2 ML
     Route: 055
  4. BUDESONIDE\FORMOTEROL\GLYCOPYRRONIUM [Suspect]
     Active Substance: BUDESONIDE\FORMOTEROL\GLYCOPYRRONIUM
     Dosage: 2 PUFFS, TWO TIMES A DAY
     Route: 055

REACTIONS (18)
  - Cellulitis [Recovered/Resolved]
  - Sepsis [Recovered/Resolved]
  - Tachycardia [Unknown]
  - Systemic inflammatory response syndrome [Unknown]
  - Musculoskeletal discomfort [Unknown]
  - Polyuria [Unknown]
  - Gait disturbance [Unknown]
  - Hyperhidrosis [Unknown]
  - Fatigue [Unknown]
  - White blood cell count increased [Recovered/Resolved]
  - Acute kidney injury [Unknown]
  - C-reactive protein increased [Unknown]
  - Procalcitonin increased [Unknown]
  - Eyelid oedema [Unknown]
  - Conjunctivitis [Recovering/Resolving]
  - Headache [Recovered/Resolved]
  - Fall [Unknown]
  - Off label use [Unknown]

NARRATIVE: CASE EVENT DATE: 20230103
